FAERS Safety Report 13030980 (Version 1)
Quarter: 2016Q4

REPORT INFORMATION
  Report Type: Spontaneous
  Country: US (occurrence: US)
  Receive Date: 20161215
  Receipt Date: 20161215
  Transmission Date: 20170207
  Serious: No
  Sender: FDA-Public Use
  Company Number: US-TARO-2016TAR00710

PATIENT
  Sex: Female

DRUGS (1)
  1. HYDROCORTISONE TOPICAL [Suspect]
     Active Substance: HYDROCORTISONE

REACTIONS (1)
  - Drug hypersensitivity [Not Recovered/Not Resolved]
